FAERS Safety Report 10415986 (Version 1)
Quarter: 2014Q3

REPORT INFORMATION
  Report Type: Spontaneous
  Country: GB (occurrence: None)
  Receive Date: 20140826
  Receipt Date: 20140826
  Transmission Date: 20150326
  Serious: No
  Sender: FDA-Public Use
  Company Number: B1016659A

PATIENT
  Age: 36 Year
  Sex: Male
  Weight: 89.81 kg

DRUGS (3)
  1. PAROXETINE HYDROCHLORIDE. [Suspect]
     Active Substance: PAROXETINE HYDROCHLORIDE
     Indication: ANXIETY
     Route: 048
  2. PAROXETINE HYDROCHLORIDE. [Suspect]
     Active Substance: PAROXETINE HYDROCHLORIDE
     Indication: ANXIETY
     Route: 048
     Dates: start: 20090710
  3. PAROXETINE HYDROCHLORIDE. [Suspect]
     Active Substance: PAROXETINE HYDROCHLORIDE
     Indication: ANXIETY
     Route: 048

REACTIONS (18)
  - Influenza like illness [None]
  - Derealisation [None]
  - Medication error [None]
  - Headache [None]
  - Insomnia [None]
  - Tinnitus [None]
  - Withdrawal syndrome [None]
  - Nausea [None]
  - Abnormal loss of weight [None]
  - Confusional state [None]
  - Depressed mood [None]
  - Anxiety [None]
  - Depression [None]
  - Agitation [None]
  - Psychiatric symptom [None]
  - Impaired work ability [None]
  - Arthralgia [None]
  - Hyperhidrosis [None]

NARRATIVE: CASE EVENT DATE: 20140520
